FAERS Safety Report 9196386 (Version 1)
Quarter: 2013Q1

REPORT INFORMATION
  Report Type: Spontaneous
  Country: FR (occurrence: FR)
  Receive Date: 20130328
  Receipt Date: 20130328
  Transmission Date: 20140127
  Serious: Yes (Hospitalization)
  Sender: FDA-Public Use
  Company Number: FR-PFIZER INC-2013092499

PATIENT
  Age: 58 Year
  Sex: Male
  Weight: 80 kg

DRUGS (10)
  1. REVATIO [Suspect]
     Dosage: 2 DF, 1X/DAY
     Route: 048
     Dates: start: 201103
  2. ALLOPURINOL [Suspect]
     Indication: GOUT
     Dosage: 200 MG, 1X/DAY
     Route: 048
     Dates: start: 20110311, end: 20110329
  3. ATORVASTATIN [Concomitant]
     Dosage: 40 MG A DAY
  4. LASILIX [Concomitant]
     Dosage: 40 MG A DAY
  5. TRACLEER [Concomitant]
     Dosage: 250 MG DAILY, DIVIDED INTO 2 INTAKES
  6. ASPIRINE [Concomitant]
     Dosage: 75 MG A DAY
  7. COUMADINE [Concomitant]
     Dosage: 2.5 MG A DAY
     Dates: end: 20110321
  8. PARACETAMOL [Concomitant]
     Dosage: UNK
  9. LEXOMIL [Concomitant]
     Dosage: 0.5 DF, 1X/DAY
  10. MACROGOL [Concomitant]
     Dosage: ONE SACHET A DAY

REACTIONS (1)
  - Toxic skin eruption [Recovering/Resolving]
